FAERS Safety Report 9319503 (Version 1)
Quarter: 2013Q2

REPORT INFORMATION
  Report Type: Spontaneous
  Country: US (occurrence: US)
  Receive Date: 20130530
  Receipt Date: 20130530
  Transmission Date: 20140414
  Serious: No
  Sender: FDA-Public Use
  Company Number: US-GLAXOSMITHKLINE-A0993138A

PATIENT
  Age: 39 Year
  Sex: Female

DRUGS (1)
  1. FLOLAN [Suspect]
     Indication: PRODUCT USED FOR UNKNOWN INDICATION
     Dosage: 17NGKM CONTINUOUS
     Route: 042
     Dates: start: 20120713, end: 20121012

REACTIONS (11)
  - Diarrhoea [Unknown]
  - Nausea [Unknown]
  - Chills [Unknown]
  - Hyperhidrosis [Unknown]
  - Malaise [Unknown]
  - Dizziness postural [Unknown]
  - Abdominal discomfort [Unknown]
  - Scar excision [Unknown]
  - Surgery [Unknown]
  - Pain in jaw [Unknown]
  - Abdominal pain upper [Unknown]
